FAERS Safety Report 15364914 (Version 3)
Quarter: 2021Q3

REPORT INFORMATION
  Report Type: Other
  Country: CA (occurrence: CA)
  Receive Date: 20180910
  Receipt Date: 20210702
  Transmission Date: 20211014
  Serious: Yes (Other)
  Sender: FDA-Public Use
  Company Number: CA-ROCHE-2181907

PATIENT
  Age: 52 Year
  Sex: Female

DRUGS (19)
  1. XOLAIR [Suspect]
     Active Substance: OMALIZUMAB
     Route: 058
     Dates: start: 201706
  2. XOLAIR [Suspect]
     Active Substance: OMALIZUMAB
     Route: 058
     Dates: start: 2017
  3. ESTROGEL [Concomitant]
     Active Substance: ESTRADIOL
     Indication: PRODUCT USED FOR UNKNOWN INDICATION
     Dosage: UNK
     Route: 065
  4. XOLAIR [Suspect]
     Active Substance: OMALIZUMAB
     Route: 058
     Dates: start: 20190305
  5. XOLAIR [Suspect]
     Active Substance: OMALIZUMAB
     Indication: PSORIASIS
     Route: 058
     Dates: start: 20171124
  6. XOLAIR [Suspect]
     Active Substance: OMALIZUMAB
     Route: 058
     Dates: start: 20180925
  7. XOLAIR [Suspect]
     Active Substance: OMALIZUMAB
     Route: 058
     Dates: end: 2020
  8. XOLAIR [Suspect]
     Active Substance: OMALIZUMAB
     Route: 058
     Dates: start: 20180219
  9. XOLAIR [Suspect]
     Active Substance: OMALIZUMAB
     Route: 058
     Dates: start: 20180219
  10. XOLAIR [Suspect]
     Active Substance: OMALIZUMAB
     Route: 058
     Dates: start: 20180828
  11. XOLAIR [Suspect]
     Active Substance: OMALIZUMAB
     Route: 058
     Dates: start: 20200117
  12. XOLAIR [Suspect]
     Active Substance: OMALIZUMAB
     Route: 058
  13. PNEUMOVAX 23 [Suspect]
     Active Substance: PNEUMOCOCCAL VACCINE, POLYVALENT 23
     Indication: PRODUCT USED FOR UNKNOWN INDICATION
     Route: 065
     Dates: start: 20200130
  14. XOLAIR [Suspect]
     Active Substance: OMALIZUMAB
     Indication: CHRONIC SPONTANEOUS URTICARIA
     Route: 058
     Dates: start: 20170902
  15. XOLAIR [Suspect]
     Active Substance: OMALIZUMAB
     Route: 058
     Dates: start: 20191017
  16. XOLAIR [Suspect]
     Active Substance: OMALIZUMAB
     Route: 058
     Dates: start: 20200409
  17. XOLAIR [Suspect]
     Active Substance: OMALIZUMAB
     Route: 058
     Dates: start: 20170901
  18. XOLAIR [Suspect]
     Active Substance: OMALIZUMAB
     Route: 058
     Dates: start: 20170901, end: 2020
  19. XOLAIR [Suspect]
     Active Substance: OMALIZUMAB
     Route: 058

REACTIONS (21)
  - Optic nerve disorder [Unknown]
  - Feeling hot [Recovering/Resolving]
  - Skin plaque [Unknown]
  - Urticaria [Recovering/Resolving]
  - Erythema [Recovering/Resolving]
  - Drug ineffective [Unknown]
  - Dizziness [Recovering/Resolving]
  - Asthma [Unknown]
  - Hypersensitivity [Unknown]
  - Dyspnoea [Unknown]
  - Product availability issue [Unknown]
  - Pain in extremity [Recovering/Resolving]
  - Transient ischaemic attack [Unknown]
  - Wound [Recovered/Resolved]
  - Cough [Unknown]
  - Condition aggravated [Unknown]
  - Hot flush [Unknown]
  - Basal cell carcinoma [Recovering/Resolving]
  - Pruritus [Unknown]
  - Blood pressure increased [Recovering/Resolving]
  - Pain [Recovering/Resolving]

NARRATIVE: CASE EVENT DATE: 201709
